FAERS Safety Report 9322023 (Version 1)
Quarter: 2013Q2

REPORT INFORMATION
  Report Type: Spontaneous
  Country: US (occurrence: None)
  Receive Date: 20130529
  Receipt Date: 20130529
  Transmission Date: 20140414
  Serious: Yes (Other)
  Sender: FDA-Public Use
  Company Number: 001541795A

PATIENT
  Age: 21 Year
  Sex: Female

DRUGS (3)
  1. PROACTIV RENEWING CLEANSER [Suspect]
     Indication: ACNE
     Route: 061
     Dates: start: 20130415, end: 20130421
  2. PROACTIV REPAIRING TREATMENT [Suspect]
     Indication: ACNE
     Route: 061
     Dates: start: 20130415, end: 20130421
  3. PROACTIV DARK SPOT CORRECTOR [Suspect]
     Indication: ACNE

REACTIONS (7)
  - Eye swelling [None]
  - Swelling face [None]
  - Erythema [None]
  - Rash [None]
  - Throat tightness [None]
  - Dyspnoea [None]
  - Hypersensitivity [None]
